FAERS Safety Report 16893839 (Version 1)
Quarter: 2019Q4

REPORT INFORMATION
  Report Type: Spontaneous
  Country: DE (occurrence: DE)
  Receive Date: 20191008
  Receipt Date: 20191008
  Transmission Date: 20200122
  Serious: Yes (Hospitalization, Other)
  Sender: FDA-Public Use
  Company Number: DE-PFIZER INC-2019432064

PATIENT
  Age: 82 Year
  Sex: Male

DRUGS (4)
  1. FORTECORTIN [DEXAMETHASONE] [Interacting]
     Active Substance: DEXAMETHASONE
     Dosage: UNK
     Route: 048
     Dates: start: 20190627
  2. CANDESARTAN [CANDESARTAN CILEXETIL] [Concomitant]
     Active Substance: CANDESARTAN CILEXETIL
     Indication: HYPERTENSION
     Dosage: UNK
  3. PANTOPRAZOLE [Suspect]
     Active Substance: PANTOPRAZOLE
     Indication: ABDOMINAL DISCOMFORT
     Dosage: UNK
     Route: 065
  4. FORTECORTIN [DEXAMETHASONE] [Interacting]
     Active Substance: DEXAMETHASONE
     Indication: SEASONAL ALLERGY
     Dosage: UNK
     Route: 048
     Dates: start: 20190624, end: 20190626

REACTIONS (4)
  - Hiccups [Recovered/Resolved]
  - Infection [Unknown]
  - Paranasal sinus discomfort [Unknown]
  - Drug interaction [Unknown]

NARRATIVE: CASE EVENT DATE: 2019
